FAERS Safety Report 4609576-2 (Version None)
Quarter: 2005Q1

REPORT INFORMATION
  Report Type: 
  Country: None (occurrence: None)
  Receive Date: 20050314
  Receipt Date: 20050228
  Transmission Date: 20050727
  Serious: Yes (Disabling, Other)
  Sender: FDA-Public Use
  Company Number: 6013371F

PATIENT
  Age: 85 Year
  Sex: Male

DRUGS (3)
  1. NIASPAN [Suspect]
     Indication: HYPERLIPIDAEMIA
     Dosage: 750 MG QD PO
     Route: 048
     Dates: start: 20041001, end: 20041101
  2. CLOPIDOGREL BISULFATE [Concomitant]
  3. METHOTREXATE SODIUM [Concomitant]

REACTIONS (4)
  - MACULAR DEGENERATION [None]
  - RETINAL CYST [None]
  - RETINAL DISORDER [None]
  - VISUAL ACUITY REDUCED [None]
